FAERS Safety Report 6417558-3 (Version None)
Quarter: 2009Q4

REPORT INFORMATION
  Report Type: 
  Country: None (occurrence: None)
  Receive Date: 20091028
  Receipt Date: 20091019
  Transmission Date: 20100525
  Serious: Yes (Other)
  Sender: FDA-Public Use
  Company Number: US-ABBOTT-09P-163-0603506-00

PATIENT
  Sex: Female
  Weight: 68.1 kg

DRUGS (7)
  1. NIASPAN [Suspect]
     Indication: BLOOD CHOLESTEROL INCREASED
     Dates: start: 20090801
  2. NIASPAN [Suspect]
     Indication: BLOOD TRIGLYCERIDES INCREASED
     Dosage: UNKNOWN
  3. ASPIRIN [Concomitant]
     Indication: MITRAL VALVE PROLAPSE
  4. LOTENSION [Concomitant]
     Indication: HYPERTENSION
     Dosage: UNKNOWN
  5. NEXIUM [Concomitant]
     Indication: BARRETT'S OESOPHAGUS
  6. ZANTAC [Concomitant]
     Indication: BARRETT'S OESOPHAGUS
     Dosage: UNKNOWN
  7. CITRACAL [Concomitant]
     Indication: COLITIS ISCHAEMIC
     Dosage: UNKNOWN
     Dates: start: 20080101

REACTIONS (11)
  - ASTHENIA [None]
  - BLOOD PRESSURE FLUCTUATION [None]
  - DIZZINESS [None]
  - DYSPNOEA [None]
  - EPISTAXIS [None]
  - NASAL CONGESTION [None]
  - NASAL DISCOMFORT [None]
  - NASOPHARYNGITIS [None]
  - RHINORRHOEA [None]
  - SWELLING [None]
  - TRANSIENT ISCHAEMIC ATTACK [None]
